FAERS Safety Report 18761464 (Version 1)
Quarter: 2021Q1

REPORT INFORMATION
  Report Type: Spontaneous
  Country: CH (occurrence: CH)
  Receive Date: 20210120
  Receipt Date: 20210120
  Transmission Date: 20210419
  Serious: Yes (Other)
  Sender: FDA-Public Use
  Company Number: CH-TEVA-2021-CH-1869611

PATIENT
  Age: 4 Year
  Sex: Female

DRUGS (6)
  1. MELPHALAN. [Suspect]
     Active Substance: MELPHALAN
     Indication: CONGENITAL RETINOBLASTOMA
     Dosage: SHE HAD RECEIVED 10 INTRAVITREAL INJECTIONS MELPHALAN
     Route: 050
  2. MELPHALAN. [Suspect]
     Active Substance: MELPHALAN
     Indication: CONGENITAL RETINOBLASTOMA
     Dosage: SHE HAD RECEIVED 2 INTRA?ARTERIAL INJECTIONS MELPHALAN
     Route: 013
  3. CARBOPLATIN. [Suspect]
     Active Substance: CARBOPLATIN
     Indication: CONGENITAL RETINOBLASTOMA
     Dosage: SHE HAD RECEIVED 2 CYCLES OF SYSTEMIC CARBOPLATIN
     Route: 065
  4. ETOPOSIDE. [Suspect]
     Active Substance: ETOPOSIDE
     Indication: CONGENITAL RETINOBLASTOMA
     Dosage: SHE HAD RECEIVED 2 CYCLES OF SYSTEMIC ETOPOSIDE
     Route: 065
  5. MELPHALAN. [Suspect]
     Active Substance: MELPHALAN
     Indication: CONGENITAL RETINOBLASTOMA
     Route: 013
  6. TOPOTECAN [Suspect]
     Active Substance: TOPOTECAN HYDROCHLORIDE
     Indication: RETINOBLASTOMA
     Route: 013

REACTIONS (2)
  - Rhegmatogenous retinal detachment [Recovered/Resolved]
  - Tractional retinal detachment [Recovered/Resolved]
